FAERS Safety Report 8495005 (Version 3)
Quarter: 2013Q4

REPORT INFORMATION
  Report Type: Report from Study
  Country: MX (occurrence: MX)
  Receive Date: 20120405
  Receipt Date: 20131104
  Transmission Date: 20140711
  Serious: Yes (Death, Hospitalization, Other)
  Sender: FDA-Public Use
  Company Number: PHHY2012MX027261

PATIENT
  Age: 83 Year
  Sex: Female

DRUGS (11)
  1. RASILEZ [Suspect]
     Dosage: 150 MG, UNK
     Dates: start: 2007
  2. DIOVAN [Suspect]
     Indication: HYPERTENSION
     Dosage: 2 DF (80MG), DAILY
     Route: 048
     Dates: start: 2005, end: 2011
  3. DIOVAN [Suspect]
     Dosage: 2 DF (80MG), DAILY
     Route: 048
     Dates: start: 2011
  4. MICARDIS [Concomitant]
     Dosage: UNK UKN, UNK
     Dates: start: 2011
  5. OMEPRAZOLE [Concomitant]
     Indication: GASTROINTESTINAL DISORDER THERAPY
     Dosage: 2 DF, BY DAY
  6. CLOPIDOGREL [Concomitant]
     Indication: ANTICOAGULANT THERAPY
     Dosage: 0.5 DF, DAILY
  7. AMLODIPINE [Concomitant]
     Indication: HYPERTENSION
     Dosage: 1.5 DF, DAILY
  8. FUROSEMIDE [Concomitant]
     Indication: FLUID RETENTION
     Dosage: 2 DF, BY DAY
     Dates: start: 2005
  9. PHENYTOIN [Concomitant]
     Indication: CONVULSION
     Dosage: 1.5 DF, DAILY
     Dates: start: 2004
  10. SINOGAN [Concomitant]
     Indication: SLEEP DISORDER
     Dosage: 0.25 DF, DAILY
     Dates: start: 2008
  11. ASPIRINA JUNIOR [Concomitant]
     Indication: ANGIOPATHY
     Dosage: UNK UKN, UNK
     Dates: start: 2004

REACTIONS (11)
  - Respiratory failure [Fatal]
  - General physical health deterioration [Unknown]
  - Lung infection [Not Recovered/Not Resolved]
  - Pyrexia [Not Recovered/Not Resolved]
  - Coma [Unknown]
  - Colon cancer [Recovered/Resolved]
  - Melaena [Recovered/Resolved]
  - Rectal haemorrhage [Recovered/Resolved]
  - Diverticulitis [Recovered/Resolved]
  - Depression [Not Recovered/Not Resolved]
  - Decreased appetite [Not Recovered/Not Resolved]
